FAERS Safety Report 11951358 (Version 6)
Quarter: 2019Q1

REPORT INFORMATION
  Report Type: Report from Study
  Country: None (occurrence: JP)
  Receive Date: 20160125
  Receipt Date: 20190104
  Transmission Date: 20190417
  Serious: Yes (Hospitalization)
  Sender: FDA-Public Use
  Company Number: JP-ABBVIE-16P-087-1544927-00

PATIENT
  Age: 7 Year
  Sex: Female

DRUGS (34)
  1. AMPICILLIN SODIUM W/CLOXACILLIN SODIUM HYDRATE [Concomitant]
     Indication: PNEUMONIA
     Dosage: 3 GRAM
     Route: 048
     Dates: start: 20130227, end: 20130304
  2. CEFAZOLIN [Concomitant]
     Active Substance: CEFAZOLIN
     Dosage: 1800MILLIGRAMTID
     Dates: start: 20140801, end: 20140805
  3. CEFAZOLIN [Concomitant]
     Active Substance: CEFAZOLIN
     Dosage: 1800MILLIGRAMTID
     Dates: start: 20140616, end: 20140622
  4. CEFAZOLIN [Concomitant]
     Active Substance: CEFAZOLIN
     Dosage: UNK
     Dates: start: 20140823, end: 20140830
  5. LIPACREON [Suspect]
     Active Substance: PANCRELIPASE
     Dosage: 600MILLIGRAM
     Route: 048
     Dates: start: 20130415, end: 20130524
  6. FERRIC OXIDE AND SACCHARATED [Concomitant]
     Dosage: 40MILLIGRAMQD
     Dates: start: 20140410, end: 20140411
  7. AMPICILLIN SODIUM /SULBACTAM SODIUM [Concomitant]
     Dosage: 2250MILLIGRAMTID
     Dates: start: 20131113, end: 20131119
  8. CEFAZOLIN [Concomitant]
     Active Substance: CEFAZOLIN
     Dosage: 1800MILLIGRAMTID
     Dates: start: 20140522, end: 20140529
  9. CEFOTAXIME SODIUM [Concomitant]
     Active Substance: CEFOTAXIME SODIUM
     Indication: CYSTIC FIBROSIS PANCREATIC
     Dosage: 2400MILLIGRAMTID
     Route: 065
     Dates: start: 20140217, end: 20140227
  10. LIPACREON [Suspect]
     Active Substance: PANCRELIPASE
     Dosage: 900 MILLIGRAM
     Route: 048
     Dates: start: 20150219
  11. LIPACREON [Suspect]
     Active Substance: PANCRELIPASE
     Dosage: 750MILLIGRAM
     Route: 048
     Dates: start: 20130525, end: 20150218
  12. PROCATEROL HYDROCHLORIDE HYDRATE [Concomitant]
     Indication: PNEUMONIA
     Dosage: .8MILLILITER
     Route: 065
     Dates: start: 20130227, end: 20130304
  13. AMPICILLIN SODIUM /SULBACTAM SODIUM [Concomitant]
     Dosage: 2250MILLIGRAMTID
     Dates: start: 20131203, end: 20131210
  14. RASENAZOLIN [Concomitant]
     Active Substance: CEFAZOLIN SODIUM
     Indication: CYSTIC FIBROSIS PANCREATIC
     Dosage: 2250MILLIGRAMTID
     Route: 065
     Dates: start: 20131219, end: 20131226
  15. PIPERACILLIN SODIUM [Concomitant]
     Active Substance: PIPERACILLIN SODIUM
     Indication: CYSTIC FIBROSIS PANCREATIC
     Dosage: 3600MILLIGRAMTID
     Route: 065
     Dates: start: 20140117, end: 20140122
  16. CEFAZOLIN [Concomitant]
     Active Substance: CEFAZOLIN
     Indication: CYSTIC FIBROSIS PANCREATIC
     Dosage: 2250MILLIGRAMTID
     Route: 065
     Dates: start: 20140129, end: 20140131
  17. CEFOTAXIME SODIUM [Concomitant]
     Active Substance: CEFOTAXIME SODIUM
     Dosage: 3600MILLIGRAMTID
     Dates: start: 20140727, end: 20140731
  18. SOLU-CORTEF [Concomitant]
     Active Substance: HYDROCORTISONE SODIUM SUCCINATE
     Indication: ERYTHEMA MULTIFORME
     Dosage: 100 MILLIGRAM, BID
     Route: 065
     Dates: start: 20140428, end: 20140429
  19. LANSOPRAZOLE. [Concomitant]
     Active Substance: LANSOPRAZOLE
     Indication: PNEUMONIA
     Dosage: 15MILLIGRAM
     Route: 048
     Dates: start: 20130517
  20. FERRIC OXIDE AND SACCHARATED [Concomitant]
     Indication: CYSTIC FIBROSIS PANCREATIC
     Dosage: 40MILLIGRAMQD
     Route: 065
     Dates: start: 20140402, end: 20140402
  21. CEFOTAXIME SODIUM [Concomitant]
     Active Substance: CEFOTAXIME SODIUM
     Dosage: 3600MILLIGRAMTID
     Dates: start: 20140409, end: 20140418
  22. TULOBUTEROL [Concomitant]
     Active Substance: TULOBUTEROL
     Indication: PNEUMONIA
     Dosage: .7GRAM
     Route: 048
     Dates: start: 20130227, end: 20130304
  23. TOBRAMYCIN. [Concomitant]
     Active Substance: TOBRAMYCIN
     Indication: PNEUMONIA
     Dosage: 600MILLIGRAM
     Route: 065
     Dates: start: 20130513, end: 20130610
  24. AMPICILLIN SODIUM /SULBACTAM SODIUM [Concomitant]
     Indication: CYSTIC FIBROSIS PANCREATIC
     Dosage: 2400MILLIGRAMTID
     Route: 065
     Dates: start: 20130724, end: 20130729
  25. CEFAZOLIN [Concomitant]
     Active Substance: CEFAZOLIN
     Dosage: 1800MILLIGRAMTID
     Dates: start: 20140502, end: 20140508
  26. MONILAC [Concomitant]
     Active Substance: LACTULOSE
     Indication: PNEUMONIA
     Dosage: 20MG/DAY
     Route: 048
     Dates: start: 20130511, end: 20150730
  27. PIALE [Concomitant]
     Indication: CONSTIPATION
     Dosage: 21MILLILITER
     Route: 048
     Dates: start: 20150731
  28. L-CARBOCISTEINE [Concomitant]
     Active Substance: CARBOCYSTEINE
     Indication: PNEUMONIA
     Dosage: 1GRAM
     Route: 048
     Dates: start: 20130227, end: 20130304
  29. AMBROXOL HYDROCHLORIDE [Concomitant]
     Active Substance: AMBROXOL HYDROCHLORIDE
     Indication: PNEUMONIA
     Dosage: 1 G/DAY
     Route: 065
     Dates: start: 20130227, end: 20130304
  30. SODIUM CROMOGLICATE [Concomitant]
     Active Substance: CROMOLYN SODIUM
     Indication: PNEUMONIA
     Dosage: 4AMPOULE
     Route: 065
     Dates: start: 20130227, end: 20130304
  31. AMPICILLIN SODIUM /SULBACTAM SODIUM [Concomitant]
     Dosage: 2250MILLIGRAMTID
     Dates: start: 20130909, end: 20130911
  32. LIPACREON [Suspect]
     Active Substance: PANCRELIPASE
     Indication: PANCREATIC FAILURE
     Dosage: 630 MILLIGRAM
     Route: 048
     Dates: start: 20120820, end: 20130414
  33. RASENAZOLIN [Concomitant]
     Active Substance: CEFAZOLIN SODIUM
     Dosage: 2250MILLIGRAMTID
     Dates: start: 20140123, end: 20140128
  34. CEFOTAXIME SODIUM [Concomitant]
     Active Substance: CEFOTAXIME SODIUM
     Dosage: 3600MILLIGRAMTID
     Dates: start: 20140327, end: 20140402

REACTIONS (3)
  - Rash [Recovered/Resolved]
  - Erythema multiforme [Recovered/Resolved]
  - Haemoptysis [Recovered/Resolved]

NARRATIVE: CASE EVENT DATE: 20140428
